FAERS Safety Report 7523538-7 (Version None)
Quarter: 2011Q2

REPORT INFORMATION
  Report Type: 
  Country: None (occurrence: None)
  Receive Date: 20110601
  Receipt Date: 20110601
  Transmission Date: 20111010
  Serious: Yes (Other)
  Sender: FDA-Public Use
  Company Number: None

PATIENT
  Age: 25 Year
  Sex: Female
  Weight: 76.6579 kg

DRUGS (1)
  1. OMEPRAZOLE [Suspect]
     Indication: ABDOMINAL PAIN UPPER
     Dosage: 20MG PO BID
     Route: 048
     Dates: start: 20110525, end: 20110531

REACTIONS (2)
  - RASH ERYTHEMATOUS [None]
  - PRURITUS [None]
